FAERS Safety Report 7194379-8 (Version None)
Quarter: 2010Q4

REPORT INFORMATION
  Report Type: 
  Country: None (occurrence: None)
  Receive Date: 20101223
  Receipt Date: 20101216
  Transmission Date: 20110411
  Serious: Yes (Hospitalization)
  Sender: FDA-Public Use
  Company Number: FR-ASTRAZENECA-2010SE59777

PATIENT
  Age: 10 Month
  Sex: Male

DRUGS (6)
  1. DIPRIVAN [Suspect]
     Indication: ANAESTHESIA
     Route: 042
     Dates: start: 20101027
  2. GARDENAL [Suspect]
     Indication: CONVULSION
     Route: 042
     Dates: start: 20101027, end: 20101027
  3. VALIUM [Suspect]
     Indication: CONVULSION
     Route: 054
     Dates: start: 20101027, end: 20101027
  4. PERFALGAN [Suspect]
     Indication: PYREXIA
     Route: 042
     Dates: start: 20101026
  5. SUFENTA PRESERVATIVE FREE [Suspect]
     Indication: ANAESTHESIA
     Route: 042
     Dates: start: 20101027
  6. HYPNOVEL [Suspect]
     Indication: AGITATION
     Route: 042
     Dates: start: 20101027, end: 20101027

REACTIONS (1)
  - CYTOLYTIC HEPATITIS [None]
